FAERS Safety Report 8118175 (Version 2)
Quarter: 2012Q4

REPORT INFORMATION
  Report Type: 
  Country: US (occurrence: US)
  Receive Date: 20110902
  Receipt Date: 20120906
  Transmission Date: 20130627
  Serious: Yes (Hospitalization)
  Sender: FDA-Public Use
  Company Number: US-US-EMD SERONO, INC.-7079412

PATIENT
  Age: 67 None
  Sex: Male
  Weight: 65 kg

DRUGS (1)
  1. REBIF [Suspect]
     Indication: MULTIPLE SCLEROSIS
     Route: 058
     Dates: start: 20080303

REACTIONS (7)
  - Plasma cell myeloma [Unknown]
  - Haemorrhage [Not Recovered/Not Resolved]
  - Weight decreased [Unknown]
  - Muscle strain [Unknown]
  - Visual impairment [Recovering/Resolving]
  - Neuropathy peripheral [Not Recovered/Not Resolved]
  - Injection site erythema [Not Recovered/Not Resolved]
